FAERS Safety Report 14211113 (Version 1)
Quarter: 2017Q4

REPORT INFORMATION
  Report Type: Spontaneous
  Country: RU (occurrence: RU)
  Receive Date: 20171121
  Receipt Date: 20171121
  Transmission Date: 20180321
  Serious: Yes (Death)
  Sender: FDA-Public Use
  Company Number: RU-SA-2017SA228448

PATIENT
  Age: 71 Year
  Sex: Male
  Weight: 71 kg

DRUGS (7)
  1. COPLAVIX [Suspect]
     Active Substance: ASPIRIN\CLOPIDOGREL BISULFATE
     Dosage: 100+75MG 1 TABL.
     Route: 048
     Dates: start: 20170923
  2. ATORVASTATIN [Concomitant]
     Active Substance: ATORVASTATIN
     Route: 048
  3. HEPARIN [Concomitant]
     Active Substance: HEPARIN SODIUM
     Route: 048
  4. PLAVIX [Suspect]
     Active Substance: CLOPIDOGREL BISULFATE
     Route: 048
     Dates: start: 20170922
  5. PRESTARIUM [Concomitant]
     Active Substance: PERINDOPRIL
     Route: 048
  6. OMEPRAZOLE. [Concomitant]
     Active Substance: OMEPRAZOLE
     Route: 048
  7. BISOPROLOL [Concomitant]
     Active Substance: BISOPROLOL
     Route: 048

REACTIONS (5)
  - Asthenia [Fatal]
  - Apnoea [Fatal]
  - Chest pain [Fatal]
  - Vascular stent thrombosis [Fatal]
  - Cough [Fatal]
